FAERS Safety Report 6551675-2 (Version None)
Quarter: 2010Q1

REPORT INFORMATION
  Report Type: 
  Country: None (occurrence: None)
  Receive Date: 20100126
  Receipt Date: 20091109
  Transmission Date: 20100710
  Serious: Yes (Death)
  Sender: FDA-Public Use
  Company Number: PHHY2009CA60516

PATIENT
  Sex: Female
  Weight: 72 kg

DRUGS (1)
  1. EXELON [Suspect]
     Dosage: PATCH 5 CM
     Route: 062
     Dates: start: 20090326

REACTIONS (1)
  - DEATH [None]
